FAERS Safety Report 16774318 (Version 1)
Quarter: 2019Q3

REPORT INFORMATION
  Report Type: Spontaneous
  Country: US (occurrence: US)
  Receive Date: 20190905
  Receipt Date: 20190905
  Transmission Date: 20191005
  Serious: No
  Sender: FDA-Public Use
  Company Number: US-ASTRAZENECA-2019SF14425

PATIENT
  Sex: Female
  Weight: 68.9 kg

DRUGS (2)
  1. SYMBICORT [Suspect]
     Active Substance: BUDESONIDE\FORMOTEROL FUMARATE DIHYDRATE
     Indication: BRONCHITIS
     Dosage: TWO PUFFS TWICE A DAY
     Route: 055
     Dates: start: 20190805, end: 20190806
  2. SYMBICORT [Suspect]
     Active Substance: BUDESONIDE\FORMOTEROL FUMARATE DIHYDRATE
     Indication: ASTHMA
     Dosage: TWO PUFFS TWICE A DAY
     Route: 055
     Dates: start: 20190805, end: 20190806

REACTIONS (5)
  - Chest pain [Unknown]
  - Sleep disorder [Unknown]
  - Vomiting [Unknown]
  - Cough [Unknown]
  - Diarrhoea [Unknown]
